FAERS Safety Report 12098834 (Version 1)
Quarter: 2016Q1

REPORT INFORMATION
  Report Type: Spontaneous
  Country: GB (occurrence: GB)
  Receive Date: 20160222
  Receipt Date: 20160222
  Transmission Date: 20160526
  Serious: Yes (Other)
  Sender: FDA-Public Use
  Company Number: GB-DRREDDYS-GER/UKI/16/0076589

PATIENT
  Age: 44 Year
  Sex: Female
  Weight: 58.96 kg

DRUGS (2)
  1. LOESTRIN NOS [Concomitant]
     Active Substance: ETHINYL ESTRADIOL\NORETHINDRONE ACETATE
     Indication: PRODUCT USED FOR UNKNOWN INDICATION
  2. TERBINAFINE TABLETS, DR. REDDY^S [Suspect]
     Active Substance: TERBINAFINE
     Indication: ONYCHOMYCOSIS
     Route: 048
     Dates: start: 20160130, end: 20160203

REACTIONS (5)
  - Dizziness [Recovering/Resolving]
  - Back pain [Recovering/Resolving]
  - Anxiety [Recovering/Resolving]
  - Malaise [Recovering/Resolving]
  - Dysgeusia [Recovering/Resolving]

NARRATIVE: CASE EVENT DATE: 20160201
